FAERS Safety Report 8743460 (Version 2)
Quarter: 2012Q4

REPORT INFORMATION
  Report Type: 
  Country: US (occurrence: US)
  Receive Date: 20120824
  Receipt Date: 20120904
  Transmission Date: 20130627
  Serious: Yes (Death)
  Sender: FDA-Public Use
  Company Number: US-US-EMD SERONO, INC.-7156258

PATIENT
  Age: 59 Year
  Sex: Male

DRUGS (1)
  1. REBIF [Suspect]
     Indication: MULTIPLE SCLEROSIS
     Route: 058
     Dates: start: 20050901, end: 20120614

REACTIONS (5)
  - Pancreatic carcinoma [Fatal]
  - Metastases to liver [Fatal]
  - Blood bilirubin increased [Unknown]
  - Platelet count decreased [Unknown]
  - Pyrexia [Unknown]
